FAERS Safety Report 10539783 (Version 2)
Quarter: 2015Q1

REPORT INFORMATION
  Report Type: Spontaneous
  Country: CA (occurrence: CA)
  Receive Date: 20141024
  Receipt Date: 20150128
  Transmission Date: 20150720
  Serious: Yes (Other)
  Sender: FDA-Public Use
  Company Number: CA-JNJFOC-20141011436

PATIENT
  Age: 63 Year
  Sex: Female

DRUGS (10)
  1. APO-CITALOPRAM [Concomitant]
     Indication: PRODUCT USED FOR UNKNOWN INDICATION
     Route: 065
  2. NOVO-CLOXIN [Suspect]
     Active Substance: CLOXACILLIN SODIUM
     Indication: INJECTION SITE INJURY
     Dosage: USED FOR 10 DAYS
     Route: 065
  3. POLYSPORIN [Suspect]
     Active Substance: BACITRACIN ZINC\POLYMYXIN B SULFATE
     Indication: INJECTION SITE INJURY
     Dosage: USED FOR 10 DAYS
     Route: 061
  4. OMEPRAZOLE. [Concomitant]
     Active Substance: OMEPRAZOLE
     Indication: PRODUCT USED FOR UNKNOWN INDICATION
     Route: 065
  5. VITAMIN D [Concomitant]
     Active Substance: CHOLECALCIFEROL
     Indication: PRODUCT USED FOR UNKNOWN INDICATION
     Route: 065
  6. NOVO-LEXIN [Suspect]
     Active Substance: CEPHALEXIN
     Indication: ABDOMINAL ABSCESS
     Dosage: USED FOR 7 DAYS
     Route: 065
  7. AMANTADINE [Concomitant]
     Active Substance: AMANTADINE
     Indication: PRODUCT USED FOR UNKNOWN INDICATION
     Route: 065
  8. REBIF [Suspect]
     Active Substance: INTERFERON BETA-1A
     Indication: MULTIPLE SCLEROSIS RELAPSE
     Route: 058
  9. REBIF [Suspect]
     Active Substance: INTERFERON BETA-1A
     Indication: MULTIPLE SCLEROSIS RELAPSE
     Dosage: USED FOR FOUR MONTHS
     Route: 058
     Dates: start: 20121005, end: 201302
  10. TOPIRAMATE. [Concomitant]
     Active Substance: TOPIRAMATE
     Indication: PRODUCT USED FOR UNKNOWN INDICATION
     Route: 065

REACTIONS (2)
  - Injection site necrosis [Recovering/Resolving]
  - Vaginal infection [Unknown]

NARRATIVE: CASE EVENT DATE: 2013
